FAERS Safety Report 5705574-6 (Version None)
Quarter: 2008Q2

REPORT INFORMATION
  Report Type: 
  Country: None (occurrence: None)
  Receive Date: 20080415
  Receipt Date: 20080401
  Transmission Date: 20081010
  Serious: Yes (Hospitalization, Other)
  Sender: FDA-Public Use
  Company Number: US-AMGEN-US270927

PATIENT
  Sex: Female
  Weight: 60.4 kg

DRUGS (20)
  1. ARANESP [Suspect]
     Indication: ANAEMIA
     Route: 058
     Dates: start: 20050120, end: 20080319
  2. LIPITOR [Concomitant]
  3. GLIPIZIDE [Concomitant]
  4. PREVACID [Concomitant]
  5. SYNTHROID [Concomitant]
  6. ATENOLOL [Concomitant]
  7. KEPPRA [Concomitant]
  8. AMLODIPINE [Concomitant]
  9. CLONIDINE HCL [Concomitant]
  10. PROZAC [Concomitant]
  11. FENTANYL [Concomitant]
     Route: 062
  12. DIOVAN [Concomitant]
  13. PLAVIX [Concomitant]
  14. COLACE [Concomitant]
  15. MIRALAX [Concomitant]
  16. PERCOCET [Concomitant]
  17. XANAX [Concomitant]
     Route: 048
  18. ASPIRIN [Concomitant]
  19. LASIX [Concomitant]
     Route: 048
  20. ETODOLAC [Concomitant]

REACTIONS (11)
  - ASTHENIA [None]
  - DEHYDRATION [None]
  - DELIRIUM [None]
  - DIVERTICULUM [None]
  - FAILURE TO THRIVE [None]
  - GASTRITIS [None]
  - NORMOCHROMIC NORMOCYTIC ANAEMIA [None]
  - OCCULT BLOOD POSITIVE [None]
  - RENAL FAILURE [None]
  - URINARY TRACT INFECTION [None]
  - WEIGHT DECREASED [None]
